FAERS Safety Report 6761419-7 (Version None)
Quarter: 2010Q2

REPORT INFORMATION
  Report Type: 
  Country: None (occurrence: None)
  Receive Date: 20100608
  Receipt Date: 20100526
  Transmission Date: 20101027
  Serious: Yes (Life-Threatening, Hospitalization, Other)
  Sender: FDA-Public Use
  Company Number: JP-ROCHE-695693

PATIENT
  Sex: Female
  Weight: 43 kg

DRUGS (9)
  1. VESANOID [Suspect]
     Indication: ACUTE PROMYELOCYTIC LEUKAEMIA
     Route: 048
     Dates: start: 20090920, end: 20091026
  2. CYLOCIDE [Concomitant]
     Route: 042
     Dates: start: 20090921, end: 20090927
  3. IDAMYCIN [Concomitant]
     Route: 042
     Dates: start: 20090921, end: 20090923
  4. ITRIZOLE [Concomitant]
     Route: 048
  5. PARIET [Concomitant]
     Route: 048
  6. BROACT [Concomitant]
     Route: 042
     Dates: start: 20091025, end: 20091102
  7. HABEKACIN [Concomitant]
     Route: 042
     Dates: start: 20091025, end: 20091029
  8. FUNGUARD [Concomitant]
     Route: 042
     Dates: start: 20091023, end: 20091030
  9. EXACIN [Concomitant]
     Route: 042
     Dates: start: 20091023, end: 20091024

REACTIONS (7)
  - ACUTE PROMYELOCYTIC LEUKAEMIA DIFFERENTIATION SYNDROME [None]
  - HAEMORRHAGE INTRACRANIAL [None]
  - HISTIOCYTOSIS HAEMATOPHAGIC [None]
  - PULMONARY ALVEOLAR HAEMORRHAGE [None]
  - RASH GENERALISED [None]
  - RETINOIC ACID SYNDROME [None]
  - SEPSIS [None]
